FAERS Safety Report 10033682 (Version 1)
Quarter: 2014Q1

REPORT INFORMATION
  Report Type: Spontaneous
  Country: US (occurrence: US)
  Receive Date: 20140325
  Receipt Date: 20140325
  Transmission Date: 20141002
  Serious: No
  Sender: FDA-Public Use
  Company Number: US-BIOGENIDEC-2014BI024071

PATIENT
  Age: 63 Year
  Sex: Male

DRUGS (9)
  1. TECFIDERA [Suspect]
     Indication: MULTIPLE SCLEROSIS
     Route: 048
     Dates: start: 20140217
  2. TECFIDERA [Suspect]
     Indication: MULTIPLE SCLEROSIS
     Route: 048
  3. ZETIA [Concomitant]
  4. CYTOMEL [Concomitant]
  5. DIOVAN [Concomitant]
  6. SYNTHROID [Concomitant]
  7. NIACIN [Concomitant]
  8. VITAMIN D2 [Concomitant]
  9. ZOLPIDEM [Concomitant]

REACTIONS (1)
  - Headache [Not Recovered/Not Resolved]
